FAERS Safety Report 21216570 (Version 1)
Quarter: 2022Q3

REPORT INFORMATION
  Report Type: Spontaneous
  Country: US (occurrence: US)
  Receive Date: 20220816
  Receipt Date: 20220816
  Transmission Date: 20221027
  Serious: No
  Sender: FDA-Public Use
  Company Number: US-PAIPHARMA-2022-US-013762

PATIENT
  Age: 71 Year
  Sex: Female
  Weight: 61.24 kg

DRUGS (1)
  1. LACTULOSE [Suspect]
     Active Substance: LACTULOSE
     Indication: Product used for unknown indication
     Dosage: 10 ML ONCE DAILY X 1 DOSE
     Dates: start: 20220605, end: 20220605

REACTIONS (1)
  - Hypersensitivity [Recovered/Resolved]

NARRATIVE: CASE EVENT DATE: 20220605
